FAERS Safety Report 10559650 (Version 1)
Quarter: 2014Q4

REPORT INFORMATION
  Report Type: Spontaneous
  Country: US (occurrence: None)
  Receive Date: 20141031
  Receipt Date: 20141031
  Transmission Date: 20150529
  Serious: No
  Sender: FDA-Public Use
  Company Number: None

PATIENT
  Age: 67 Year
  Sex: Male

DRUGS (1)
  1. ZYTIGA [Suspect]
     Active Substance: ABIRATERONE ACETATE
     Indication: PROSTATE CANCER
     Route: 048
     Dates: start: 20131127

REACTIONS (4)
  - Chest pain [None]
  - Fatigue [None]
  - Paralysis [None]
  - Musculoskeletal chest pain [None]

NARRATIVE: CASE EVENT DATE: 20141029
